FAERS Safety Report 5724673-6 (Version None)
Quarter: 2008Q2

REPORT INFORMATION
  Report Type: 
  Country: None (occurrence: None)
  Receive Date: 20080501
  Receipt Date: 20080422
  Transmission Date: 20081010
  Serious: Yes (Hospitalization, Other)
  Sender: FDA-Public Use
  Company Number: DE-ELI_LILLY_AND_COMPANY-DE200802000020

PATIENT
  Sex: Male
  Weight: 62 kg

DRUGS (9)
  1. PEMETREXED [Suspect]
     Indication: NON-SMALL CELL LUNG CANCER
     Dosage: 500 MG/M2, EVERY THREE WEEKS
     Route: 042
     Dates: start: 20080123
  2. PEMETREXED [Suspect]
     Dosage: 250 MG/M2, DAY 1 EVERY 3 WEEKS
     Route: 042
  3. TARCEVA [Suspect]
     Indication: NON-SMALL CELL LUNG CANCER
     Dosage: 150 MG, DAILY (1/D)
     Route: 065
     Dates: start: 20080123
  4. FOLIC ACID [Concomitant]
     Indication: SUPPLEMENTATION THERAPY
     Dosage: 1250 UG, DAILY (1/D)
     Route: 048
     Dates: start: 20080112
  5. VITAMIN B-12 [Concomitant]
     Indication: SUPPLEMENTATION THERAPY
     Dosage: 1000 UG, UNKNOWN
     Route: 065
     Dates: start: 20080116, end: 20080116
  6. DEXAMETHASONE [Concomitant]
     Indication: SUPPLEMENTATION THERAPY
     Dosage: 8 MG, UNKNOWN
     Route: 065
     Dates: start: 20080123, end: 20080124
  7. DURAGESIC-100 [Concomitant]
     Indication: PAIN
     Dosage: 50 MG, UNKNOWN
     Route: 065
     Dates: start: 20071010
  8. METOPROLOL SUCCINATE [Concomitant]
     Indication: HYPERTENSION
     Dosage: 1 TAB, UNKNOWN
     Route: 065
  9. DIGOXIN [Concomitant]
     Indication: HYPERTENSION
     Dosage: 1 TAB, UNKNOWN
     Route: 065

REACTIONS (3)
  - GASTROINTESTINAL INFLAMMATION [None]
  - LEUKOPENIA [None]
  - THROMBOCYTOPENIA [None]
